FAERS Safety Report 17533430 (Version 1)
Quarter: 2020Q1

REPORT INFORMATION
  Report Type: Spontaneous
  Country: US (occurrence: US)
  Receive Date: 20200312
  Receipt Date: 20200312
  Transmission Date: 20200409
  Serious: Yes (Other)
  Sender: FDA-Public Use
  Company Number: US-PFIZER INC-2020106806

PATIENT
  Age: 46 Year
  Sex: Female

DRUGS (1)
  1. XELJANZ XR [Suspect]
     Active Substance: TOFACITINIB CITRATE
     Dosage: 11 MG, UNK
     Dates: start: 202002, end: 2020

REACTIONS (7)
  - Dysphagia [Unknown]
  - Dyspnoea [Unknown]
  - Irritability [Unknown]
  - Inhibitory drug interaction [Unknown]
  - Feeling abnormal [Unknown]
  - Anaphylactic reaction [Unknown]
  - Hypoaesthesia oral [Unknown]

NARRATIVE: CASE EVENT DATE: 2020
